FAERS Safety Report 5715080-0 (Version None)
Quarter: 2008Q2

REPORT INFORMATION
  Report Type: 
  Country: None (occurrence: None)
  Receive Date: 20080423
  Receipt Date: 20080418
  Transmission Date: 20081010
  Serious: Yes (Death)
  Sender: FDA-Public Use
  Company Number: CA-BOEHRINGER INGELHEIM GMBH, GERMANY-2008-DE-02360GD

PATIENT
  Age: 42 Year
  Sex: Female

DRUGS (6)
  1. CODEINE SUL TAB [Suspect]
  2. DEXTROMETHORPHAN HYDROBROMIDE [Suspect]
  3. DURAGESIC-100 [Suspect]
     Route: 048
  4. CHLORPHENIRAMINE MALEATE [Suspect]
  5. NORTRIPTYLINE HCL [Suspect]
  6. AMITRIPTYLINE HCL [Suspect]

REACTIONS (3)
  - ACCIDENTAL OVERDOSE [None]
  - DRUG ABUSE [None]
  - UNRESPONSIVE TO STIMULI [None]
